FAERS Safety Report 7118430-6 (Version None)
Quarter: 2010Q4

REPORT INFORMATION
  Report Type: 
  Country: None (occurrence: None)
  Receive Date: 20101123
  Receipt Date: 20101111
  Transmission Date: 20110411
  Serious: Yes (Other)
  Sender: FDA-Public Use
  Company Number: ZA-JNJFOC-20101104715

PATIENT
  Sex: Female

DRUGS (2)
  1. TRAMADOL HCL [Suspect]
     Indication: MIGRAINE
     Route: 065
  2. CYMBALTA [Interacting]
     Indication: ILL-DEFINED DISORDER
     Route: 065

REACTIONS (3)
  - BLOOD TEST ABNORMAL [None]
  - DRUG INTERACTION [None]
  - EPILEPSY [None]
